FAERS Safety Report 7384336-0 (Version None)
Quarter: 2011Q1

REPORT INFORMATION
  Report Type: 
  Country: None (occurrence: None)
  Receive Date: 20110330
  Receipt Date: 20110329
  Transmission Date: 20110831
  Serious: Yes (Other)
  Sender: FDA-Public Use
  Company Number: US-PFIZER INC-2011070073

PATIENT
  Sex: Female
  Weight: 68.027 kg

DRUGS (1)
  1. ADVIL COLD AND SINUS [Suspect]
     Dosage: UNK
     Dates: start: 20110328, end: 20110328

REACTIONS (2)
  - PRODUCT SIZE ISSUE [None]
  - CHOKING [None]
